FAERS Safety Report 9496493 (Version 1)
Quarter: 2013Q3

REPORT INFORMATION
  Report Type: Spontaneous
  Country: US (occurrence: US)
  Receive Date: 20130904
  Receipt Date: 20130904
  Transmission Date: 20140515
  Serious: Yes (Other)
  Sender: FDA-Public Use
  Company Number: PHEH2013US018512

PATIENT
  Sex: Female

DRUGS (8)
  1. MYFORTIC [Suspect]
     Dosage: 360 MG, UNK
  2. PROGRAF [Suspect]
     Dosage: UNK UKN, UNK
  3. TRIMETHOPRIM [Concomitant]
     Dosage: UNK UKN, UNK
  4. METOPROLOL [Concomitant]
     Dosage: UNK UKN, UNK
  5. NIFEDIPINE [Concomitant]
     Dosage: UNK UKN, UNK
  6. PREDNISONE [Concomitant]
     Dosage: UNK UKN, UNK
  7. GLIPIZIDE [Concomitant]
     Dosage: UNK UKN, UNK
  8. ALENDRONATE [Concomitant]
     Dosage: UNK UKN, UNK

REACTIONS (2)
  - Blindness [Unknown]
  - Eye disorder [Unknown]
